FAERS Safety Report 25982048 (Version 1)
Quarter: 2025Q4

REPORT INFORMATION
  Report Type: Spontaneous
  Country: AU (occurrence: AU)
  Receive Date: 20251031
  Receipt Date: 20251031
  Transmission Date: 20260117
  Serious: Yes (Hospitalization)
  Sender: SANDOZ
  Company Number: AU-002147023-NVSC2023AU093723

PATIENT
  Age: 3 Month
  Sex: Male

DRUGS (13)
  1. AMPHOTERICIN B [Suspect]
     Active Substance: AMPHOTERICIN B
     Indication: Wound infection staphylococcal
     Dosage: UNK
     Route: 065
  2. AMPHOTERICIN B [Suspect]
     Active Substance: AMPHOTERICIN B
     Indication: Device related infection
  3. CYCLOSPORINE [Suspect]
     Active Substance: CYCLOSPORINE
     Indication: Haemophagocytic lymphohistiocytosis
     Dosage: UNK (2 DOSES)
     Route: 065
  4. DEXAMETHASONE [Suspect]
     Active Substance: DEXAMETHASONE
     Indication: Haemophagocytic lymphohistiocytosis
     Dosage: UNK (2 DOSES)
     Route: 065
  5. ETOPOSIDE [Suspect]
     Active Substance: ETOPOSIDE
     Indication: Haemophagocytic lymphohistiocytosis
     Dosage: UNK (2 DOSES)
     Route: 065
  6. MEROPENEM [Suspect]
     Active Substance: MEROPENEM
     Indication: Wound infection staphylococcal
     Dosage: UNK
     Route: 065
  7. MEROPENEM [Suspect]
     Active Substance: MEROPENEM
     Indication: Device related infection
  8. VANCOMYCIN [Suspect]
     Active Substance: VANCOMYCIN
     Indication: Wound infection staphylococcal
     Dosage: UNK
     Route: 065
  9. VANCOMYCIN [Suspect]
     Active Substance: VANCOMYCIN
     Indication: Device related infection
  10. SEBELIPASE ALFA [Concomitant]
     Active Substance: SEBELIPASE ALFA
     Indication: Product used for unknown indication
     Dosage: 5 MG/KG, QW
     Route: 042
  11. SEBELIPASE ALFA [Concomitant]
     Active Substance: SEBELIPASE ALFA
     Dosage: 5 MG/KG, Q2W
     Route: 042
  12. TAZOBACTAM [Concomitant]
     Active Substance: TAZOBACTAM
     Indication: Wound infection staphylococcal
     Dosage: UNK
     Route: 065
  13. TICARCILLIN [Concomitant]
     Active Substance: TICARCILLIN
     Indication: Wound infection staphylococcal
     Dosage: UNK
     Route: 065

REACTIONS (6)
  - Upper gastrointestinal haemorrhage [Unknown]
  - Hypertension [Unknown]
  - Refeeding syndrome [Unknown]
  - Product use issue [Unknown]
  - Product use in unapproved indication [Unknown]
  - Off label use [Unknown]
